FAERS Safety Report 16347116 (Version 1)
Quarter: 2019Q2

REPORT INFORMATION
  Report Type: Spontaneous
  Country: US (occurrence: US)
  Receive Date: 20190523
  Receipt Date: 20190523
  Transmission Date: 20190711
  Serious: No
  Sender: FDA-Public Use
  Company Number: US-TARO-2019TAR00305

PATIENT
  Sex: Female
  Weight: 58.96 kg

DRUGS (2)
  1. UNSPECIFIED BLOOD PRESSURE MEDICATION [Concomitant]
     Active Substance: UNSPECIFIED INGREDIENT
  2. CLORAZEPATE DIPOTASSIUM TABLETS USP 7.5 MG [Suspect]
     Active Substance: CLORAZEPATE DIPOTASSIUM
     Indication: IMPAIRED GASTRIC EMPTYING
     Dosage: 7.5 MG, 2X/DAY
     Route: 048
     Dates: start: 201902, end: 2019

REACTIONS (2)
  - Pruritus generalised [Unknown]
  - Pharyngeal paraesthesia [Unknown]
